FAERS Safety Report 13122062 (Version 4)
Quarter: 2017Q2

REPORT INFORMATION
  Report Type: Spontaneous
  Country: NL (occurrence: NL)
  Receive Date: 20170117
  Receipt Date: 20170428
  Transmission Date: 20170830
  Serious: Yes (Death, Hospitalization)
  Sender: FDA-Public Use
  Company Number: NL-NOVOPROD-526264

PATIENT
  Age: 54 Year
  Sex: Male

DRUGS (2)
  1. GLUCAGEN HYPOKIT [Suspect]
     Active Substance: GLUCAGON HYDROCHLORIDE
     Indication: HYPOGLYCAEMIC COMA
     Dosage: UNK
     Route: 065
     Dates: start: 20170104
  2. GLUCOSE [Concomitant]
     Active Substance: DEXTROSE
     Indication: HYPOGLYCAEMIC COMA
     Dosage: UNK
     Route: 042

REACTIONS (1)
  - Needle issue [Fatal]

NARRATIVE: CASE EVENT DATE: 20170104
